FAERS Safety Report 5291783-X (Version None)
Quarter: 2007Q2

REPORT INFORMATION
  Report Type: 
  Country: None (occurrence: None)
  Receive Date: 20070406
  Receipt Date: 20070406
  Transmission Date: 20071010
  Serious: No
  Sender: FDA-Public Use
  Company Number: None

PATIENT
  Age: 89 Year
  Sex: Female

DRUGS (1)
  1. AMIODARONE HCL [Suspect]
     Indication: ATRIAL FIBRILLATION
     Dosage: ORAL;400.0 MILLIGRAM
     Route: 048
     Dates: start: 20070301, end: 20070321

REACTIONS (2)
  - CARDIAC FAILURE CONGESTIVE [None]
  - PULMONARY FIBROSIS [None]
